FAERS Safety Report 15754843 (Version 2)
Quarter: 2019Q1

REPORT INFORMATION
  Report Type: Spontaneous
  Country: US (occurrence: US)
  Receive Date: 20181224
  Receipt Date: 20190226
  Transmission Date: 20190417
  Serious: No
  Sender: FDA-Public Use
  Company Number: US-TEVA-2018-US-989544

PATIENT
  Age: 76 Year
  Sex: Female

DRUGS (1)
  1. PROAIR RESPICLICK [Suspect]
     Active Substance: ALBUTEROL SULFATE

REACTIONS (3)
  - Wrong technique in device usage process [Unknown]
  - Drug effect incomplete [Unknown]
  - Device issue [Unknown]

NARRATIVE: CASE EVENT DATE: 20181211
